FAERS Safety Report 24218616 (Version 1)
Quarter: 2024Q3

REPORT INFORMATION
  Report Type: Spontaneous
  Country: US (occurrence: None)
  Receive Date: 20240815
  Receipt Date: 20240815
  Transmission Date: 20241017
  Serious: Yes (Other)
  Sender: Public
  Company Number: None

PATIENT
  Age: 61 Year
  Sex: Female
  Weight: 76.5 kg

DRUGS (13)
  1. WEGOVY [Suspect]
     Active Substance: SEMAGLUTIDE
     Indication: Weight decreased
     Dosage: OTHER QUANTITY : 1 INJECTION(S);?OTHER FREQUENCY : ONCE A WEEK;?OTHER ROUTE : INJECTED TO ABDOMEN;?
     Route: 050
     Dates: start: 20240501, end: 20240731
  2. NEUTRIPTYLINE [Concomitant]
  3. NEURONTINE [Concomitant]
  4. PROZAC [Concomitant]
     Active Substance: FLUOXETINE HYDROCHLORIDE
  5. ATIVAN [Concomitant]
     Active Substance: LORAZEPAM
  6. PRILOSEC [Concomitant]
     Active Substance: OMEPRAZOLE MAGNESIUM
  7. PEPCID [Concomitant]
     Active Substance: FAMOTIDINE
  8. COLACE [Concomitant]
     Active Substance: DOCUSATE SODIUM
  9. XELJANZ [Concomitant]
     Active Substance: TOFACITINIB CITRATE
  10. COPAXONE [Concomitant]
     Active Substance: GLATIRAMER ACETATE
  11. FLOUXITINE [Concomitant]
  12. ADVIL [Concomitant]
     Active Substance: IBUPROFEN\IBUPROFEN SODIUM
  13. VITAMIN D [Concomitant]
     Active Substance: VITAMIN D NOS

REACTIONS (2)
  - Loss of consciousness [None]
  - Orthostatic hypotension [None]

NARRATIVE: CASE EVENT DATE: 20240625
